FAERS Safety Report 15221080 (Version 4)
Quarter: 2018Q4

REPORT INFORMATION
  Report Type: Report from Study
  Country: US (occurrence: US)
  Receive Date: 20180731
  Receipt Date: 20181118
  Transmission Date: 20190204
  Serious: Yes (Hospitalization)
  Sender: FDA-Public Use
  Company Number: US-ALEXION PHARMACEUTICALS INC.-A201809462

PATIENT
  Sex: Female

DRUGS (2)
  1. STRENSIQ [Suspect]
     Active Substance: ASFOTASE ALFA
     Indication: PRODUCT USED FOR UNKNOWN INDICATION
     Dosage: UNK
     Route: 058
  2. STRENSIQ [Suspect]
     Active Substance: ASFOTASE ALFA
     Dosage: HALF THE DOSE, TWICE A WEEK
     Route: 065

REACTIONS (8)
  - Blood alkaline phosphatase increased [Recovering/Resolving]
  - Hepatomegaly [Unknown]
  - Biliary dilatation [Unknown]
  - Abdominal pain [Unknown]
  - Vomiting projectile [Unknown]
  - Abdominal tenderness [Unknown]
  - Bone pain [Unknown]
  - Incorrect dose administered [Unknown]

NARRATIVE: CASE EVENT DATE: 201803
